FAERS Safety Report 7465310-2 (Version None)
Quarter: 2011Q2

REPORT INFORMATION
  Report Type: 
  Country: None (occurrence: None)
  Receive Date: 20110509
  Receipt Date: 20110407
  Transmission Date: 20111010
  Serious: Yes (Other)
  Sender: FDA-Public Use
  Company Number: BR-SANOFI-AVENTIS-2011SA021447

PATIENT
  Age: 79 Year
  Sex: Female
  Weight: 67 kg

DRUGS (1)
  1. ZOLPIDEM TARTRATE [Suspect]
     Dosage: 1 TABLET
     Route: 048
     Dates: start: 20101201

REACTIONS (4)
  - DISORIENTATION [None]
  - ABNORMAL BEHAVIOUR [None]
  - FEELING ABNORMAL [None]
  - SENSORY LOSS [None]
